FAERS Safety Report 5387462-0 (Version None)
Quarter: 2007Q3

REPORT INFORMATION
  Report Type: 
  Country: None (occurrence: None)
  Receive Date: 20070716
  Receipt Date: 20070713
  Transmission Date: 20080115
  Serious: Yes (Other)
  Sender: FDA-Public Use
  Company Number: AU-BRISTOL-MYERS SQUIBB COMPANY-13844923

PATIENT
  Sex: Female

DRUGS (2)
  1. AVAPRO [Suspect]
     Route: 048
  2. PANADOL [Suspect]
     Indication: INFLUENZA
     Route: 048
     Dates: start: 20070713, end: 20070713

REACTIONS (7)
  - FEELING HOT [None]
  - GINGIVAL PAIN [None]
  - HEADACHE [None]
  - HEART RATE INCREASED [None]
  - PERIPHERAL COLDNESS [None]
  - TOOTHACHE [None]
  - TREMOR [None]
